FAERS Safety Report 6403579-3 (Version None)
Quarter: 2009Q4

REPORT INFORMATION
  Report Type: 
  Country: None (occurrence: None)
  Receive Date: 20091015
  Receipt Date: 20091015
  Transmission Date: 20100525
  Serious: Yes (Life-Threatening)
  Sender: FDA-Public Use
  Company Number: None

PATIENT
  Sex: Male

DRUGS (1)
  1. AVELOX [Suspect]
     Dosage: 400 MG IV
     Route: 042
     Dates: start: 20091012, end: 20091012

REACTIONS (2)
  - CARDIO-RESPIRATORY ARREST [None]
  - HYPOTENSION [None]
